FAERS Safety Report 25104598 (Version 2)
Quarter: 2025Q4

REPORT INFORMATION
  Report Type: Report from Study
  Country: US (occurrence: None)
  Receive Date: 20250321
  Receipt Date: 20251103
  Transmission Date: 20260119
  Serious: Yes (Other)
  Sender: UCB
  Company Number: US-UCBSA-2025016484

PATIENT
  Age: 54 Year

DRUGS (3)
  1. ROZANOLIXIZUMAB [Suspect]
     Active Substance: ROZANOLIXIZUMAB
     Indication: Myasthenia gravis
     Dosage: UNK, WEEKLY (QW) (840MG/6ML, ONCE WEEKLY)
  2. ROZANOLIXIZUMAB [Suspect]
     Active Substance: ROZANOLIXIZUMAB
     Dosage: UNK, WEEKLY (QW) (840MG/6ML, ONCE WEEKLY)
  3. ROZANOLIXIZUMAB [Suspect]
     Active Substance: ROZANOLIXIZUMAB
     Dosage: UNK, WEEKLY (QW) (840MG/4ML, ONCE WEEKLY)

REACTIONS (1)
  - Myasthenia gravis [Recovered/Resolved with Sequelae]
